FAERS Safety Report 15312060 (Version 1)
Quarter: 2018Q3

REPORT INFORMATION
  Report Type: Spontaneous
  Country: SE (occurrence: SE)
  Receive Date: 20180823
  Receipt Date: 20180823
  Transmission Date: 20181010
  Serious: Yes (Disabling)
  Sender: FDA-Public Use
  Company Number: SE-TEVA-2018-SE-947137

PATIENT
  Sex: Male

DRUGS (11)
  1. FURIX [Concomitant]
     Active Substance: FUROSEMIDE
  2. ISOPTO?MAXIDEX [Concomitant]
  3. ALLOPURINOL. [Concomitant]
     Active Substance: ALLOPURINOL
  4. ALVEDON [Concomitant]
     Active Substance: ACETAMINOPHEN
  5. AZOPT [Concomitant]
     Active Substance: BRINZOLAMIDE
  6. VALACICLOVIR [Concomitant]
     Active Substance: VALACYCLOVIR HYDROCHLORIDE
  7. PREDNISOLONE. [Concomitant]
     Active Substance: PREDNISOLONE
     Dates: start: 20170116
  8. ALENDRONIC ACID [Suspect]
     Active Substance: ALENDRONIC ACID
     Indication: OSTEOPOROSIS PROPHYLAXIS
     Dosage: 70MG 1/VECKA
     Route: 048
     Dates: start: 20170607, end: 20180517
  9. LATACOMP [Concomitant]
  10. KALCIPOS?D FORTE [Concomitant]
     Active Substance: CALCIUM CARBONATE\CHOLECALCIFEROL
     Dates: start: 20170607, end: 20180801
  11. LOSARTAN. [Concomitant]
     Active Substance: LOSARTAN

REACTIONS (2)
  - Tooth injury [Not Recovered/Not Resolved]
  - Periodontitis [Not Recovered/Not Resolved]
